FAERS Safety Report 13989279 (Version 3)
Quarter: 2017Q4

REPORT INFORMATION
  Report Type: Report from Study
  Country: FR (occurrence: LA)
  Receive Date: 20170920
  Receipt Date: 20171013
  Transmission Date: 20180321
  Serious: Yes (Death, Hospitalization)
  Sender: FDA-Public Use
  Company Number: LA-CONCORDIA PHARMACEUTICALS INC.-GSH201709-005277

PATIENT
  Age: 67 Year
  Sex: Female

DRUGS (13)
  1. KAYEXALATE [Suspect]
     Active Substance: SODIUM POLYSTYRENE SULFONATE
     Indication: PRODUCT USED FOR UNKNOWN INDICATION
     Route: 048
     Dates: start: 20130415, end: 20130418
  2. HYOSCINE BUTYLBROMIDE [Concomitant]
     Active Substance: BUTYLSCOPOLAMINE
  3. INSULIN HUMAN NOS [Suspect]
     Active Substance: INSULIN HUMAN
     Indication: PRODUCT USED FOR UNKNOWN INDICATION
     Route: 065
  4. CIMETIDINE [Concomitant]
     Active Substance: CIMETIDINE
  5. DOBUTAMINE [Concomitant]
     Active Substance: DOBUTAMINE\DOBUTAMINE HYDROCHLORIDE
  6. FUROSEMIDE. [Suspect]
     Active Substance: FUROSEMIDE
     Indication: PRODUCT USED FOR UNKNOWN INDICATION
     Route: 065
  7. OMEPRAZOLE. [Concomitant]
     Active Substance: OMEPRAZOLE
  8. DOMPERIDONE [Concomitant]
     Active Substance: DOMPERIDONE
  9. PHLOROGLUCINOL [Concomitant]
     Active Substance: PHLOROGLUCINOL
  10. VITAMINS COMBINATION [Concomitant]
  11. CALCIUM GLUCONATE. [Concomitant]
     Active Substance: CALCIUM GLUCONATE
  12. CEFTRIAXONE. [Concomitant]
     Active Substance: CEFTRIAXONE
  13. NORAMIDOPYRINE [Concomitant]
     Active Substance: NORAMIDOPYRINE

REACTIONS (3)
  - Dyspnoea [Fatal]
  - Hypokalaemia [Fatal]
  - Drug interaction [Unknown]

NARRATIVE: CASE EVENT DATE: 20130414
